FAERS Safety Report 8524677-4 (Version None)
Quarter: 2012Q3

REPORT INFORMATION
  Report Type: 
  Country: None (occurrence: None)
  Receive Date: 20120720
  Receipt Date: 20120716
  Transmission Date: 20120928
  Serious: No
  Sender: FDA-Public Use
  Company Number: US-009507513-1207USA005272

PATIENT

DRUGS (4)
  1. VICTRELIS [Suspect]
     Indication: HEPATITIS C
     Dosage: 800 MG, TID
     Route: 048
     Dates: start: 20120413
  2. PEGASYS [Suspect]
     Dosage: UNK
     Dates: start: 20120316
  3. RIBAVIRIN [Suspect]
     Dosage: UNK
     Dates: start: 20120316
  4. GLYBURIDE [Concomitant]

REACTIONS (1)
  - RASH [None]
